FAERS Safety Report 9270845 (Version 1)
Quarter: 2013Q2

REPORT INFORMATION
  Report Type: Spontaneous
  Country: US (occurrence: US)
  Receive Date: 20130503
  Receipt Date: 20130503
  Transmission Date: 20140414
  Serious: Yes (Hospitalization)
  Sender: FDA-Public Use
  Company Number: US-NICOBRDEVP-2013-08104

PATIENT
  Age: 52 Year
  Sex: Male

DRUGS (5)
  1. HYDRALAZINE (WATSON LABORATORIES) [Suspect]
     Indication: HYPERTENSION
     Dosage: UNK
     Route: 065
  2. CLONIDINE (WATSON LABORATORIES) [Suspect]
     Indication: HYPERTENSION
     Dosage: UNK
     Route: 065
  3. LACTULOSE (UNKNOWN) (LACTULOSE) UNK, UNKUNK [Suspect]
     Indication: CONSTIPATION
     Dosage: AS NEEDED
     Route: 065
  4. FERROUS SULFATE [Concomitant]
     Indication: PRODUCT USED FOR UNKNOWN INDICATION
     Dosage: UNK
     Route: 065
  5. AMLODIPINE [Concomitant]
     Indication: PRODUCT USED FOR UNKNOWN INDICATION
     Dosage: UNK
     Route: 065

REACTIONS (2)
  - Gastrointestinal tract mucosal pigmentation [Recovered/Resolved]
  - Normochromic normocytic anaemia [None]
